FAERS Safety Report 10074848 (Version 2)
Quarter: 2014Q2

REPORT INFORMATION
  Report Type: Spontaneous
  Country: US (occurrence: US)
  Receive Date: 20140414
  Receipt Date: 20140423
  Transmission Date: 20141212
  Serious: No
  Sender: FDA-Public Use
  Company Number: US-BIOGENIDEC-2014BI034910

PATIENT
  Sex: Male

DRUGS (10)
  1. TYSABRI [Suspect]
     Indication: MULTIPLE SCLEROSIS
     Route: 042
     Dates: start: 20120405, end: 20140403
  2. AVONEX [Concomitant]
     Indication: MULTIPLE SCLEROSIS
     Route: 030
  3. VITAMIN E [Concomitant]
  4. AMLODIPINE BESYLATE [Concomitant]
  5. ASPIRIN EC [Concomitant]
  6. CALCIUM [Concomitant]
  7. VITAMIN C [Concomitant]
  8. NAPROXYN SODIUM [Concomitant]
  9. VITAMIN D3 [Concomitant]
  10. MULTIVITAMIN [Concomitant]

REACTIONS (1)
  - Blood count abnormal [Unknown]
